FAERS Safety Report 4772525-0 (Version None)
Quarter: 2005Q3

REPORT INFORMATION
  Report Type: 
  Country: None (occurrence: None)
  Receive Date: 20050916
  Receipt Date: 20050916
  Transmission Date: 20060218
  Serious: Yes (Other)
  Sender: FDA-Public Use
  Company Number: None

PATIENT
  Sex: Female
  Weight: 71.6683 kg

DRUGS (3)
  1. ZETIA [Suspect]
     Indication: BLOOD CHOLESTEROL INCREASED
     Dosage: 10 MG DAILY PO
     Route: 048
  2. NORVASC [Concomitant]
  3. ASPIRIN [Concomitant]

REACTIONS (20)
  - ABDOMINAL DISTENSION [None]
  - ARTHRALGIA [None]
  - BLEPHAROSPASM [None]
  - BONE PAIN [None]
  - CHANGE OF BOWEL HABIT [None]
  - DRUG EFFECT DECREASED [None]
  - DYSPHONIA [None]
  - FATIGUE [None]
  - HEPATIC ENZYME INCREASED [None]
  - HEPATIC STEATOSIS [None]
  - HEPATIC TRAUMA [None]
  - LIVER DISORDER [None]
  - MICTURITION DISORDER [None]
  - MOVEMENT DISORDER [None]
  - MUSCLE DISORDER [None]
  - MUSCLE INJURY [None]
  - MUSCULOSKELETAL STIFFNESS [None]
  - MYALGIA [None]
  - RENAL DISORDER [None]
  - WEIGHT INCREASED [None]
